FAERS Safety Report 19053641 (Version 4)
Quarter: 2022Q1

REPORT INFORMATION
  Report Type: Report from Study
  Country: JP (occurrence: JP)
  Receive Date: 20210324
  Receipt Date: 20220125
  Transmission Date: 20220423
  Serious: Yes (Hospitalization)
  Sender: FDA-Public Use
  Company Number: JP-CHUGAI-A2019028395ROCHE

PATIENT
  Age: 74 Year
  Sex: Male
  Weight: 67 kg

DRUGS (23)
  1. BEVACIZUMAB [Suspect]
     Active Substance: BEVACIZUMAB
     Indication: Non-small cell lung cancer
     Dosage: 15MG/KG
     Route: 041
     Dates: start: 20190206, end: 20190206
  2. BEVACIZUMAB [Suspect]
     Active Substance: BEVACIZUMAB
     Dosage: 15MG/KG
     Route: 041
     Dates: start: 20190322, end: 20190507
  3. ATEZOLIZUMAB [Suspect]
     Active Substance: ATEZOLIZUMAB
     Indication: Non-small cell lung cancer
     Dosage: MOST RECENT DOSE ON 01/DEC/2020
     Route: 041
     Dates: start: 20190206, end: 20201201
  4. ATEZOLIZUMAB [Suspect]
     Active Substance: ATEZOLIZUMAB
     Dosage: DOSE INTERVAL UNCERTAINTY
     Route: 041
     Dates: start: 20190301
  5. ATEZOLIZUMAB [Suspect]
     Active Substance: ATEZOLIZUMAB
     Dosage: DOSE INTERVAL UNCERTAINTY
     Route: 041
     Dates: start: 20190322
  6. ATEZOLIZUMAB [Suspect]
     Active Substance: ATEZOLIZUMAB
     Dosage: DOSE INTERVAL UNCERTAINTY
     Route: 041
     Dates: start: 20190412
  7. ATEZOLIZUMAB [Suspect]
     Active Substance: ATEZOLIZUMAB
     Dosage: DOSE INTERVAL UNCERTAINTY
     Route: 041
     Dates: start: 20190507
  8. ATEZOLIZUMAB [Suspect]
     Active Substance: ATEZOLIZUMAB
     Dosage: DOSE INTERVAL UNCERTAINTY
     Route: 041
     Dates: start: 20200428
  9. ATEZOLIZUMAB [Suspect]
     Active Substance: ATEZOLIZUMAB
     Dosage: DOSE INTERVAL UNCERTAINTY
     Route: 041
     Dates: start: 20201201
  10. ASPIRIN [Concomitant]
     Active Substance: ASPIRIN
     Indication: Cardiac failure
     Route: 048
     Dates: start: 20181203
  11. ASPIRIN [Concomitant]
     Active Substance: ASPIRIN
     Route: 048
     Dates: start: 20201222
  12. MICARDIS [Concomitant]
     Active Substance: TELMISARTAN
     Indication: Hypertension
     Route: 048
     Dates: start: 20181203
  13. LIVALO [Concomitant]
     Active Substance: PITAVASTATIN CALCIUM
     Indication: Hyperlipidaemia
     Route: 048
     Dates: start: 20181203
  14. FEBUXOSTAT [Concomitant]
     Active Substance: FEBUXOSTAT
     Indication: Hyperuricaemia
     Route: 048
     Dates: start: 20181203
  15. NORVASC [Concomitant]
     Active Substance: AMLODIPINE BESYLATE
     Indication: Hypertension
     Route: 048
     Dates: start: 20181203
  16. KETOPROFEN [Concomitant]
     Active Substance: KETOPROFEN
     Indication: Back pain
     Route: 061
     Dates: start: 20181203, end: 20210124
  17. CARVEDILOL [Concomitant]
     Active Substance: CARVEDILOL
     Indication: Cardiac failure
     Dates: start: 20181203
  18. CARVEDILOL [Concomitant]
     Active Substance: CARVEDILOL
     Indication: Hypertension
  19. ZETIA [Concomitant]
     Active Substance: EZETIMIBE
     Indication: Hyperlipidaemia
     Route: 048
     Dates: start: 20181203
  20. ETHYL LOFLAZEPATE [Concomitant]
     Active Substance: ETHYL LOFLAZEPATE
     Indication: Insomnia
     Route: 048
     Dates: start: 20181203
  21. NITROGLYCERIN [Concomitant]
     Active Substance: NITROGLYCERIN
     Indication: Cardiac failure
     Dosage: AT THE THORACODYNIA?AS REQUIRED
     Route: 061
     Dates: start: 20180604
  22. SODIUM GUALENATE MONOHYDRATE [Concomitant]
     Active Substance: SODIUM GUALENATE MONOHYDRATE
     Indication: Stomatitis
     Dosage: PROPER QUANTITY THREE TIMES A DAY
     Dates: start: 20180911, end: 20210124
  23. NEXIUM [Concomitant]
     Active Substance: ESOMEPRAZOLE MAGNESIUM
     Indication: Gastritis prophylaxis
     Route: 048
     Dates: start: 20200112

REACTIONS (3)
  - COVID-19 [Recovered/Resolved]
  - Pneumonitis [Recovering/Resolving]
  - Cardiac ventricular thrombosis [Unknown]

NARRATIVE: CASE EVENT DATE: 20201213
